FAERS Safety Report 20393266 (Version 2)
Quarter: 2022Q1

REPORT INFORMATION
  Report Type: Spontaneous
  Country: JP (occurrence: JP)
  Receive Date: 20220128
  Receipt Date: 20220210
  Transmission Date: 20220423
  Serious: Yes (Hospitalization, Other)
  Sender: FDA-Public Use
  Company Number: JP-TEVA-2022-JP-2001090

PATIENT
  Age: 55 Year
  Sex: Female

DRUGS (4)
  1. SULFASALAZINE [Suspect]
     Active Substance: SULFASALAZINE
     Indication: Colitis ulcerative
     Route: 065
  2. GOLIMUMAB [Suspect]
     Active Substance: GOLIMUMAB
     Indication: Colitis ulcerative
     Route: 065
  3. PREDNISONE [Suspect]
     Active Substance: PREDNISONE
     Indication: Pulmonary granuloma
     Dosage: 30 MILLIGRAM DAILY; 0.5 MG/KG/DAY
     Route: 048
  4. VEDOLIZUMAB [Concomitant]
     Active Substance: VEDOLIZUMAB
     Indication: Colitis ulcerative
     Route: 065

REACTIONS (5)
  - Hepatic function abnormal [Unknown]
  - Eosinophilia [Unknown]
  - Paradoxical drug reaction [Recovering/Resolving]
  - Substance-induced psychotic disorder [Unknown]
  - Pulmonary granuloma [Recovering/Resolving]
